FAERS Safety Report 7682959-2 (Version None)
Quarter: 2011Q3

REPORT INFORMATION
  Report Type: 
  Country: None (occurrence: None)
  Receive Date: 20110815
  Receipt Date: 20110809
  Transmission Date: 20111222
  Serious: Yes (Hospitalization)
  Sender: FDA-Public Use
  Company Number: US-ROCHE-796193

PATIENT
  Age: 66 Year
  Sex: Female
  Weight: 58.7 kg

DRUGS (10)
  1. PEMETREXED [Suspect]
     Indication: NON-SMALL CELL LUNG CANCER
     Dosage: OVER 10 MIN ON DAY 1
     Route: 042
     Dates: start: 20110601
  2. ZOLPIDEM TARTRATE [Concomitant]
  3. FOLIC ACID [Concomitant]
  4. SPIRIVA [Concomitant]
  5. CISPLATIN [Suspect]
     Indication: NON-SMALL CELL LUNG CANCER
     Dosage: OVER 60 MIN ON DAY 1
     Route: 042
     Dates: start: 20110601
  6. SERETIDE [Concomitant]
  7. RAMIPRIL [Concomitant]
  8. LANSOPRAZOLE [Concomitant]
  9. BEVACIZUMAB [Suspect]
     Indication: NON-SMALL CELL LUNG CANCER
     Dosage: OVER 30-90 MIN ON DAY 1, AFTER 4 CYCLES 15 MG/KG IV OVER 30-90 MIN ON DAY 1Q 3 WKS, FOR UP TO 1 YEAR
     Route: 042
     Dates: start: 20110601
  10. LIPITOR [Concomitant]

REACTIONS (1)
  - PARTIAL SEIZURES [None]
